FAERS Safety Report 25042496 (Version 1)
Quarter: 2025Q1

REPORT INFORMATION
  Report Type: Spontaneous
  Country: US (occurrence: US)
  Receive Date: 20250305
  Receipt Date: 20250305
  Transmission Date: 20250409
  Serious: No
  Sender: LEXICON PHARMACEUTICALS
  Company Number: US-LEX-000663

PATIENT
  Age: 74 Year
  Sex: Male

DRUGS (10)
  1. INPEFA [Suspect]
     Active Substance: SOTAGLIFLOZIN
     Indication: Hypertension
     Route: 048
     Dates: start: 20240703, end: 20240712
  2. INPEFA [Suspect]
     Active Substance: SOTAGLIFLOZIN
     Indication: Hypertension
     Route: 048
     Dates: start: 202408
  3. Lantus U-100 Insulin [Concomitant]
  4. METFORMIN [Concomitant]
     Active Substance: METFORMIN HYDROCHLORIDE
  5. NEBIVOLOL [Concomitant]
     Active Substance: NEBIVOLOL
  6. SPIRONOLACTONE [Concomitant]
     Active Substance: SPIRONOLACTONE
  7. ALBUTEROL [Concomitant]
     Active Substance: ALBUTEROL
  8. MONTELUKAST [Concomitant]
     Active Substance: MONTELUKAST
  9. PANCRELIPASE [Concomitant]
     Active Substance: PANCRELIPASE
  10. ATORVASTATIN [Concomitant]
     Active Substance: ATORVASTATIN

REACTIONS (2)
  - Dizziness [Recovered/Resolved]
  - Off label use [Unknown]

NARRATIVE: CASE EVENT DATE: 20240703
